FAERS Safety Report 8053734-4 (Version None)
Quarter: 2012Q1

REPORT INFORMATION
  Report Type: 
  Country: None (occurrence: None)
  Receive Date: 20120118
  Receipt Date: 20120112
  Transmission Date: 20120608
  Serious: Yes (Other)
  Sender: FDA-Public Use
  Company Number: US-PFIZER INC-2011300364

PATIENT
  Sex: Female

DRUGS (3)
  1. EFFEXOR XR [Suspect]
     Dosage: 450 MG, UNK
  2. EFFEXOR XR [Suspect]
     Dosage: 150 MG, UNK
  3. EFFEXOR XR [Suspect]
     Indication: POST-TRAUMATIC STRESS DISORDER
     Dosage: 75 MG, 1X/DAY
     Route: 048

REACTIONS (4)
  - DEPRESSED MOOD [None]
  - WITHDRAWAL SYNDROME [None]
  - STRESS [None]
  - EMOTIONAL DISORDER [None]
